FAERS Safety Report 18179097 (Version 1)
Quarter: 2020Q3

REPORT INFORMATION
  Report Type: Spontaneous
  Country: ES (occurrence: ES)
  Receive Date: 20200821
  Receipt Date: 20200821
  Transmission Date: 20201103
  Serious: Yes (Hospitalization)
  Sender: FDA-Public Use
  Company Number: ES-TEVA-2020-ES-1816003

PATIENT
  Age: 56 Year
  Sex: Female

DRUGS (3)
  1. DULOXETINA (7421A) [Suspect]
     Active Substance: DULOXETINE
     Indication: SUICIDE ATTEMPT
     Dosage: 90 MG, 12 CPS   (UNIT DOSE: 1080 MG)
     Route: 048
     Dates: start: 20200331, end: 20200331
  2. RIVOTRIL [Interacting]
     Active Substance: CLONAZEPAM
     Indication: SUICIDE ATTEMPT
     Dosage: 7 CPS  (UNIT DOSE: 3.5 MG)
     Route: 048
     Dates: start: 20200331, end: 20200331
  3. LORAZEPAM (1864A) [Interacting]
     Active Substance: LORAZEPAM
     Indication: SUICIDE ATTEMPT
     Dosage: 1 MG, 10 CPS   (UNIT DOE: 10 MG)
     Route: 048
     Dates: start: 20200331, end: 20200331

REACTIONS (5)
  - Acute kidney injury [Recovered/Resolved]
  - Depressed level of consciousness [Recovered/Resolved]
  - Rhabdomyolysis [Recovered/Resolved]
  - Drug interaction [Unknown]
  - Pneumonia aspiration [Recovered/Resolved]

NARRATIVE: CASE EVENT DATE: 20200331
